FAERS Safety Report 8067864-4 (Version None)
Quarter: 2012Q1

REPORT INFORMATION
  Report Type: 
  Country: None (occurrence: None)
  Receive Date: 20120124
  Receipt Date: 20120120
  Transmission Date: 20120608
  Serious: Yes (Hospitalization)
  Sender: FDA-Public Use
  Company Number: FR-GILEAD-2010-0033249

PATIENT
  Sex: Female

DRUGS (7)
  1. ZEFFIX [Suspect]
     Dosage: 25 MG, QD
     Route: 048
     Dates: end: 20110801
  2. PHENOXYMETHYL PENICILLIN [Suspect]
     Route: 048
  3. CALCIUM CARBONATE [Suspect]
     Route: 048
  4. VIREAD [Suspect]
     Indication: HEPATITIS B
     Dosage: 2.857 MG, QD
     Route: 048
     Dates: start: 20100501
  5. PROTELOS [Suspect]
     Route: 048
  6. MYCOPHENOLATE MOFETIL (CELLCEPT) [Suspect]
     Route: 048
     Dates: start: 19970101
  7. ALLOPURINOL [Suspect]
     Route: 048

REACTIONS (1)
  - COLITIS ULCERATIVE [None]
